FAERS Safety Report 8252252-8 (Version None)
Quarter: 2012Q2

REPORT INFORMATION
  Report Type: 
  Country: None (occurrence: None)
  Receive Date: 20120402
  Receipt Date: 20120327
  Transmission Date: 20120825
  Serious: Yes (Other)
  Sender: FDA-Public Use
  Company Number: US-AMGEN-USASP2012020106

PATIENT
  Age: 83 Year
  Sex: Male
  Weight: 72.562 kg

DRUGS (4)
  1. LASIX [Concomitant]
     Indication: OEDEMA PERIPHERAL
     Dosage: 20 MG, UNK
     Route: 048
  2. FOLIC ACID [Concomitant]
     Indication: COLD TYPE HAEMOLYTIC ANAEMIA
     Dosage: UNK UNK, QD
     Route: 048
  3. ALLOPURINOL [Concomitant]
     Indication: GOUT
     Dosage: 100 MG, UNK
     Route: 048
  4. PROCRIT [Suspect]
     Indication: COLD AGGLUTININS
     Dosage: 40000 IU, QWK
     Route: 058
     Dates: start: 19970101

REACTIONS (13)
  - DIVERTICULITIS [None]
  - INCORRECT DRUG ADMINISTRATION RATE [None]
  - ABSCESS [None]
  - HAEMOGLOBIN DECREASED [None]
  - HYPOACUSIS [None]
  - MALAISE [None]
  - ATRIOVENTRICULAR BLOCK SECOND DEGREE [None]
  - INJECTION SITE PAIN [None]
  - PYREXIA [None]
  - TRANSIENT ISCHAEMIC ATTACK [None]
  - CHOLECYSTECTOMY [None]
  - APPENDICECTOMY [None]
  - EXTRASYSTOLES [None]
